FAERS Safety Report 6036826-0 (Version None)
Quarter: 2009Q1

REPORT INFORMATION
  Report Type: 
  Country: None (occurrence: None)
  Receive Date: 20090114
  Receipt Date: 20090107
  Transmission Date: 20090719
  Serious: Yes (Other)
  Sender: FDA-Public Use
  Company Number: PHHY2009BR00962

PATIENT
  Sex: Female
  Weight: 73 kg

DRUGS (2)
  1. ELIDEL [Suspect]
     Indication: VITILIGO
     Dosage: UNK
     Route: 061
  2. ELIDEL [Suspect]
     Indication: RASH MACULAR

REACTIONS (7)
  - APPLICATION SITE WARMTH [None]
  - DRUG INEFFECTIVE [None]
  - HAEMORRHAGE [None]
  - NERVE INJURY [None]
  - PIGMENTATION DISORDER [None]
  - PRODUCT QUALITY ISSUE [None]
  - ROAD TRAFFIC ACCIDENT [None]
